FAERS Safety Report 7806497-9 (Version None)
Quarter: 2011Q4

REPORT INFORMATION
  Report Type: 
  Country: None (occurrence: None)
  Receive Date: 20111011
  Receipt Date: 20111005
  Transmission Date: 20120403
  Serious: Yes (Hospitalization)
  Sender: FDA-Public Use
  Company Number: KR-BAYER-2011-095198

PATIENT
  Age: 68 Year
  Sex: Male
  Weight: 74 kg

DRUGS (2)
  1. SORAFENIB (RAF KINASE INHIBITOR) [Suspect]
     Indication: RENAL CELL CARCINOMA
     Dosage: 400 MG, BID
     Dates: start: 20091130, end: 20100208
  2. SORAFENIB (RAF KINASE INHIBITOR) [Suspect]
     Dosage: 200 MG, BID
     Dates: start: 20100209, end: 20100222

REACTIONS (9)
  - PALMAR-PLANTAR ERYTHRODYSAESTHESIA SYNDROME [None]
  - OEDEMA PERIPHERAL [None]
  - STOMATITIS [None]
  - BLOOD UREA INCREASED [None]
  - PRURITUS [None]
  - HEPATIC FUNCTION ABNORMAL [None]
  - BLOOD CREATININE INCREASED [None]
  - PYREXIA [None]
  - ALOPECIA [None]
